FAERS Safety Report 8027784-8 (Version None)
Quarter: 2011Q4

REPORT INFORMATION
  Report Type: 
  Country: None (occurrence: None)
  Receive Date: 20111130
  Receipt Date: 20110808
  Transmission Date: 20120403
  Serious: Yes (Death, Hospitalization, Other)
  Sender: FDA-Public Use
  Company Number: US201005000547

PATIENT
  Age: 55 Year
  Sex: Male

DRUGS (5)
  1. LIPITOR [Concomitant]
  2. BYETTA [Suspect]
     Dates: start: 20051001
  3. VITAMINS-MINERALS THERAPEUTIC (VITAMINS-MINERALS THERAPEUTIC UNKNOWN F [Concomitant]
  4. EXENATIDE, DISPOSABLE DEVICE (EXENATIDE PEN ) PEN,DISPOSABLE [Concomitant]
  5. COUMADIN [Concomitant]

REACTIONS (5)
  - PANCREATITIS ACUTE [None]
  - OFF LABEL USE [None]
  - PANCREATITIS NECROTISING [None]
  - CHOLELITHIASIS [None]
  - RENAL FAILURE [None]
